FAERS Safety Report 8267806-2 (Version None)
Quarter: 2012Q2

REPORT INFORMATION
  Report Type: 
  Country: None (occurrence: None)
  Receive Date: 20120404
  Receipt Date: 20120328
  Transmission Date: 20120825
  Serious: Yes (Other)
  Sender: FDA-Public Use
  Company Number: 217117

PATIENT

DRUGS (2)
  1. INNOHEP [Suspect]
     Indication: ANTICOAGULANT THERAPY
  2. PREVISCAN (FLUINDIONE) [Concomitant]

REACTIONS (1)
  - CEREBROVASCULAR ACCIDENT [None]
